FAERS Safety Report 21312815 (Version 1)
Quarter: 2022Q3

REPORT INFORMATION
  Report Type: Spontaneous
  Country: US (occurrence: None)
  Receive Date: 20220908
  Receipt Date: 20220908
  Transmission Date: 20221026
  Serious: Yes (Other)
  Sender: FDA-Public Use
  Company Number: None

PATIENT
  Age: 9 Year
  Sex: Female
  Weight: 22.95 kg

DRUGS (3)
  1. MONTELUKAST [Suspect]
     Active Substance: MONTELUKAST SODIUM
     Indication: Asthma
     Dates: start: 20220201, end: 20220823
  2. ALBUTEROL [Concomitant]
  3. DAILY KIDS GOLD MULTIVITAMIN [Concomitant]

REACTIONS (6)
  - Violence-related symptom [None]
  - Morbid thoughts [None]
  - Agitation [None]
  - Insomnia [None]
  - Initial insomnia [None]
  - Behaviour disorder [None]

NARRATIVE: CASE EVENT DATE: 20220823
